FAERS Safety Report 4835445-9 (Version None)
Quarter: 2005Q4

REPORT INFORMATION
  Report Type: 
  Country: None (occurrence: None)
  Receive Date: 20051122
  Receipt Date: 20051122
  Transmission Date: 20060501
  Serious: Yes (Disabling, Other)
  Sender: FDA-Public Use
  Company Number: None

PATIENT
  Age: 54 Year
  Sex: Male
  Weight: 66.6788 kg

DRUGS (2)
  1. MORPHINE SULFATE [Suspect]
     Indication: INTERVERTEBRAL DISC PROTRUSION
     Dosage: 30 BID PO
     Route: 048
  2. MORPHINE SULFATE [Suspect]
     Indication: SPINAL COLUMN STENOSIS
     Dosage: 30 BID PO
     Route: 048

REACTIONS (10)
  - ABDOMINAL PAIN UPPER [None]
  - ANOREXIA [None]
  - ARTHRALGIA [None]
  - BACK PAIN [None]
  - MENTAL STATUS CHANGES [None]
  - MOBILITY DECREASED [None]
  - NAUSEA [None]
  - PAIN [None]
  - SKIN FISSURES [None]
  - VOMITING [None]
